FAERS Safety Report 21404060 (Version 1)
Quarter: 2022Q4

REPORT INFORMATION
  Report Type: Spontaneous
  Country: AU (occurrence: AU)
  Receive Date: 20221003
  Receipt Date: 20221003
  Transmission Date: 20230113
  Serious: Yes (Other)
  Sender: FDA-Public Use
  Company Number: AU-BAXTER-2022BAX020664

PATIENT
  Sex: Female

DRUGS (5)
  1. DOXORUBICIN [Suspect]
     Active Substance: DOXORUBICIN
     Indication: Marginal zone lymphoma
     Dosage: R-CHOP REGIMEN, (6 CYCLES), (FOR ALMOST SEVEN YEARS)
     Route: 065
     Dates: start: 2015
  2. CYCLOPHOSPHAMIDE [Suspect]
     Active Substance: CYCLOPHOSPHAMIDE
     Indication: Marginal zone lymphoma
     Dosage: R-CHOP REGIMEN, (6 CYCLES), (FOR ALMOST SEVEN YEARS)
     Route: 065
     Dates: start: 2015
  3. RITUXIMAB [Suspect]
     Active Substance: RITUXIMAB
     Indication: Marginal zone lymphoma
     Dosage: R-CHOP REGIMEN, (6 CYCLES), (FOR ALMOST SEVEN YEARS)
     Route: 065
     Dates: start: 2015
  4. VINCRISTINE [Suspect]
     Active Substance: VINCRISTINE
     Indication: Marginal zone lymphoma
     Dosage: R-CHOP REGIMEN, (6 CYCLES), (FOR ALMOST SEVEN YEARS)
     Route: 065
     Dates: start: 2015
  5. PREDNISONE [Suspect]
     Active Substance: PREDNISONE
     Indication: Marginal zone lymphoma
     Dosage: R-CHOP REGIMEN, (6 CYCLES), (FOR ALMOST SEVEN YEARS)
     Route: 065
     Dates: start: 2015

REACTIONS (5)
  - Extranodal marginal zone B-cell lymphoma (MALT type) stage IV [Unknown]
  - Nodal marginal zone B-cell lymphoma stage IV [Unknown]
  - Marginal zone lymphoma recurrent [Unknown]
  - Night sweats [Unknown]
  - Fatigue [Unknown]
